FAERS Safety Report 7074890-0 (Version None)
Quarter: 2010Q4

REPORT INFORMATION
  Report Type: 
  Country: None (occurrence: None)
  Receive Date: 20101029
  Receipt Date: 20101020
  Transmission Date: 20110411
  Serious: Yes (Hospitalization)
  Sender: FDA-Public Use
  Company Number: US-ABBOTT-10P-163-0671483-00

PATIENT
  Age: 74 Year
  Sex: Male

DRUGS (3)
  1. LEUPRORELIN DEPOT [Suspect]
     Indication: PROSTATE CANCER
     Dosage: STARTING DOSE (INITIAL)
     Route: 030
     Dates: start: 20090930, end: 20090930
  2. LEUPRORELIN DEPOT [Suspect]
     Dosage: MAINTENANCE DOSE
     Route: 030
  3. MAGNESIUM WITH ZINC [Concomitant]
     Indication: MEDICAL DIET
     Dates: start: 20030101

REACTIONS (2)
  - AGITATION [None]
  - PSYCHOTIC DISORDER [None]
